FAERS Safety Report 22100546 (Version 1)
Quarter: 2023Q1

REPORT INFORMATION
  Report Type: Spontaneous
  Country: GB (occurrence: None)
  Receive Date: 20230316
  Receipt Date: 20230316
  Transmission Date: 20230418
  Serious: Yes (Other)
  Sender: FDA-Public Use
  Company Number: 2023A061244

PATIENT
  Sex: Female

DRUGS (1)
  1. OLAPARIB [Suspect]
     Active Substance: OLAPARIB
     Indication: Breast cancer metastatic
     Route: 048

REACTIONS (12)
  - Haemoglobin abnormal [Unknown]
  - Blood sodium abnormal [Unknown]
  - Blood potassium abnormal [Unknown]
  - Blood urea increased [Unknown]
  - Blood creatine abnormal [Unknown]
  - Blood bilirubin abnormal [Unknown]
  - Alanine aminotransferase increased [Unknown]
  - Aspartate aminotransferase decreased [Unknown]
  - Blood alkaline phosphatase increased [Unknown]
  - Blood albumin abnormal [Unknown]
  - Platelet count decreased [Unknown]
  - White blood cell count decreased [Unknown]
